FAERS Safety Report 6384427-7 (Version None)
Quarter: 2009Q4

REPORT INFORMATION
  Report Type: 
  Country: None (occurrence: None)
  Receive Date: 20091001
  Receipt Date: 20090918
  Transmission Date: 20100525
  Serious: Yes (Hospitalization)
  Sender: FDA-Public Use
  Company Number: SE-PFIZER INC-2009267364

PATIENT
  Age: 98 Year

DRUGS (8)
  1. BLINDED *NO SUBJECT DRUG [Suspect]
     Indication: CARDIAC FAILURE
     Dosage: UNK
     Route: 048
     Dates: start: 20080404
  2. BLINDED *PLACEBO [Suspect]
     Indication: CARDIAC FAILURE
     Dosage: UNK
     Route: 048
     Dates: start: 20080404
  3. BLINDED EPLERENONE [Suspect]
     Indication: CARDIAC FAILURE
     Dosage: UNK
     Route: 048
     Dates: start: 20080404
  4. ACETYLSALICYLIC ACID [Concomitant]
     Dosage: UNK
     Route: 048
     Dates: start: 19950526
  5. METOPROLOL [Concomitant]
     Dosage: UNK
     Route: 048
     Dates: start: 19950526
  6. RAMIPRIL [Concomitant]
     Dosage: UNK
     Route: 048
     Dates: start: 19950526
  7. ATORVASTATIN [Concomitant]
     Dosage: UNK
     Route: 048
     Dates: start: 20080212
  8. FUROSEMIDE [Concomitant]
     Dosage: UNK
     Route: 048
     Dates: start: 20080213

REACTIONS (2)
  - ARRHYTHMIA SUPRAVENTRICULAR [None]
  - HYPERTHYROIDISM [None]
